FAERS Safety Report 20536516 (Version 1)
Quarter: 2022Q1

REPORT INFORMATION
  Report Type: Spontaneous
  Country: NO (occurrence: NO)
  Receive Date: 20220302
  Receipt Date: 20220302
  Transmission Date: 20220423
  Serious: Yes (Hospitalization)
  Sender: FDA-Public Use
  Company Number: None

PATIENT
  Age: 41 Year
  Sex: Female
  Weight: 75 kg

DRUGS (2)
  1. TRAMADOL HYDROCHLORIDE [Suspect]
     Active Substance: TRAMADOL HYDROCHLORIDE
     Indication: Pain
     Dosage: 50 MILLIGRAM, EVERY 8 HRS
     Route: 048
     Dates: start: 20210902, end: 20210904
  2. ACETAMINOPHEN [Concomitant]
     Active Substance: ACETAMINOPHEN
     Indication: Pain
     Dosage: 1000 MILLIGRAM, EVERY 6 HRS
     Route: 048
     Dates: start: 20210902

REACTIONS (8)
  - Heart rate irregular [Recovered/Resolved]
  - Hypoacusis [Recovered/Resolved]
  - Hypoaesthesia [Recovered/Resolved]
  - Hypertension [Recovered/Resolved]
  - Visual impairment [Recovered/Resolved]
  - Presyncope [Recovered/Resolved]
  - Heart rate increased [Recovered/Resolved]
  - Dizziness [Recovered/Resolved]

NARRATIVE: CASE EVENT DATE: 20210901
